FAERS Safety Report 19830296 (Version 1)
Quarter: 2021Q3

REPORT INFORMATION
  Report Type: Spontaneous
  Country: US (occurrence: US)
  Receive Date: 20210913
  Receipt Date: 20210913
  Transmission Date: 20211014
  Serious: Yes (Hospitalization)
  Sender: FDA-Public Use
  Company Number: None

PATIENT
  Age: 46 Year
  Sex: Female

DRUGS (27)
  1. CEFDINIR. [Concomitant]
     Active Substance: CEFDINIR
  2. CEPHALEXIN. [Concomitant]
     Active Substance: CEPHALEXIN
  3. INSULIN ASPA FLEXPEN [Concomitant]
  4. PREGABALIN. [Concomitant]
     Active Substance: PREGABALIN
  5. BUT/APAP/CAF [Concomitant]
  6. OXYCODONE AND ACETAMINOPHEN [Concomitant]
     Active Substance: ACETAMINOPHEN\OXYCODONE HYDROCHLORIDE
  7. STOOL SOFTEN [Concomitant]
  8. CIPRO/DEXA [Concomitant]
  9. DULOXETINE. [Concomitant]
     Active Substance: DULOXETINE
  10. NYSTOP [Concomitant]
     Active Substance: NYSTATIN
  11. AMLODIPINE [Concomitant]
     Active Substance: AMLODIPINE BESYLATE
  12. CLONAZEPAM. [Concomitant]
     Active Substance: CLONAZEPAM
  13. METHOTREXATE. [Concomitant]
     Active Substance: METHOTREXATE
  14. PROPRANOLOL [Concomitant]
     Active Substance: PROPRANOLOL HYDROCHLORIDE
  15. ZOLPIDEM [Concomitant]
     Active Substance: ZOLPIDEM TARTRATE
  16. ACYCLOVIR. [Concomitant]
     Active Substance: ACYCLOVIR
  17. CIPROFLOXACIN. [Concomitant]
     Active Substance: CIPROFLOXACIN
  18. HYDROCO/APAP [Concomitant]
     Active Substance: ACETAMINOPHEN\HYDROCODONE
  19. SPRYCEL [Suspect]
     Active Substance: DASATINIB
     Indication: ACUTE LYMPHOCYTIC LEUKAEMIA
     Route: 048
     Dates: start: 20170721
  20. DOXYCYC MONO [Concomitant]
     Active Substance: DOXYCYCLINE
  21. ENOXAPARIN [Concomitant]
     Active Substance: ENOXAPARIN
  22. FUROSEMIDE. [Concomitant]
     Active Substance: FUROSEMIDE
  23. LATUDA [Concomitant]
     Active Substance: LURASIDONE HYDROCHLORIDE
  24. VITAMIN D [Concomitant]
     Active Substance: VITAMIN D NOS
  25. CLINDAMYCIN. [Concomitant]
     Active Substance: CLINDAMYCIN
  26. MECLIZINE [Concomitant]
     Active Substance: MECLIZINE HYDROCHLORIDE
  27. DOK [Concomitant]
     Active Substance: DOCUSATE SODIUM

REACTIONS (2)
  - Toe amputation [None]
  - Localised infection [None]

NARRATIVE: CASE EVENT DATE: 20210823
